FAERS Safety Report 5044433-1 (Version None)
Quarter: 2006Q2

REPORT INFORMATION
  Report Type: 
  Country: None (occurrence: None)
  Receive Date: 20060629
  Receipt Date: 20060616
  Transmission Date: 20061013
  Serious: Yes (Other)
  Sender: FDA-Public Use
  Company Number: 2006077324

PATIENT
  Sex: Female

DRUGS (4)
  1. NEURONTIN [Suspect]
     Indication: PAIN IN EXTREMITY
     Dates: end: 20050101
  2. CELEBREX [Suspect]
     Indication: INTERVERTEBRAL DISC DISORDER
     Dates: start: 20050901, end: 20050901
  3. CELEBREX [Suspect]
     Indication: SPONDYLOLISTHESIS
     Dates: start: 20050901, end: 20050901
  4. IBUPROFEN [Concomitant]

REACTIONS (17)
  - ARTHRALGIA [None]
  - BUTTOCK PAIN [None]
  - CALCINOSIS [None]
  - DIFFICULTY IN WALKING [None]
  - DRUG INEFFECTIVE [None]
  - DYSSTASIA [None]
  - EXOSTOSIS [None]
  - GROIN PAIN [None]
  - HYPOAESTHESIA [None]
  - INTERVERTEBRAL DISC DISORDER [None]
  - NERVE ROOT COMPRESSION [None]
  - OSTEOSCLEROSIS [None]
  - PAIN IN EXTREMITY [None]
  - RADICULITIS [None]
  - SCAR [None]
  - SPINAL COLUMN STENOSIS [None]
  - SPONDYLOLISTHESIS [None]
